FAERS Safety Report 9299862 (Version 3)
Quarter: 2013Q4

REPORT INFORMATION
  Report Type: Spontaneous
  Country: US (occurrence: US)
  Receive Date: 20130107
  Receipt Date: 20131226
  Transmission Date: 20140711
  Serious: Yes (Other)
  Sender: FDA-Public Use
  Company Number: PHHY2012US076972

PATIENT
  Age: 60 Year
  Sex: Female
  Weight: 56.7 kg

DRUGS (4)
  1. GILENYA [Suspect]
     Indication: MULTIPLE SCLEROSIS
     Route: 048
     Dates: start: 20120830
  2. AMANTADINE [Concomitant]
  3. CERSETIN (VINPOCETINE) [Concomitant]
  4. ACETYLSALICYLIC ACID [Concomitant]

REACTIONS (9)
  - Oedema peripheral [None]
  - Joint swelling [None]
  - Feeling cold [None]
  - Fatigue [None]
  - Decreased appetite [None]
  - Diarrhoea [None]
  - White blood cell count decreased [None]
  - Liver function test abnormal [None]
  - Weight decreased [None]
